FAERS Safety Report 20590138 (Version 1)
Quarter: 2022Q1

REPORT INFORMATION
  Report Type: Other
  Country: US (occurrence: None)
  Receive Date: 20220314
  Receipt Date: 20220314
  Transmission Date: 20220423
  Serious: Yes (Hospitalization)
  Sender: FDA-Public Use
  Company Number: US-ROCHE-3048004

PATIENT
  Sex: Male

DRUGS (1)
  1. OCREVUS [Suspect]
     Active Substance: OCRELIZUMAB
     Indication: Primary progressive multiple sclerosis
     Dosage: 600 MG EVERY 6 MONTHS, LAST DATE OF TREATMENT: SEP/2021 AND ANTICIPATED DATE OF TREATMENT: MAR/2022
     Route: 065
     Dates: start: 20171108

REACTIONS (1)
  - COVID-19 [Unknown]
